FAERS Safety Report 13555260 (Version 1)
Quarter: 2017Q2

REPORT INFORMATION
  Report Type: Spontaneous
  Country: OM (occurrence: OM)
  Receive Date: 20170517
  Receipt Date: 20170517
  Transmission Date: 20170830
  Serious: Yes (Other)
  Sender: FDA-Public Use
  Company Number: OM-UNICHEM LABORATORIES LIMITED-UCM201705-000122

PATIENT
  Age: 6 Month
  Sex: Female

DRUGS (3)
  1. AMLODIPINE [Suspect]
     Active Substance: AMLODIPINE BESYLATE
  2. FLUCONAZOL [Concomitant]
     Active Substance: FLUCONAZOLE
  3. HYDRALAZINE [Concomitant]
     Active Substance: HYDRALAZINE HYDROCHLORIDE
     Indication: HYPERTENSION

REACTIONS (3)
  - Weight increased [Unknown]
  - Generalised oedema [Recovered/Resolved]
  - Ascites [Recovered/Resolved]
